FAERS Safety Report 21791515 (Version 1)
Quarter: 2022Q4

REPORT INFORMATION
  Report Type: Report from Study
  Country: US (occurrence: US)
  Receive Date: 20221228
  Receipt Date: 20221228
  Transmission Date: 20230112
  Serious: Yes (Other)
  Sender: FDA-Public Use
  Company Number: US-ACADIA PHARMACEUTICALS INC.-ACA-2022-PIM-004402

PATIENT
  Sex: Female

DRUGS (18)
  1. NUPLAZID [Suspect]
     Active Substance: PIMAVANSERIN TARTRATE
     Indication: Parkinson^s disease
     Dosage: 34 MILLIGRAM
     Route: 048
  2. NUPLAZID [Suspect]
     Active Substance: PIMAVANSERIN TARTRATE
     Indication: Hallucination
  3. NUPLAZID [Suspect]
     Active Substance: PIMAVANSERIN TARTRATE
     Indication: Delusion
  4. BIOTIN [Concomitant]
     Active Substance: BIOTIN
     Dosage: 10000 MCG
     Route: 065
  5. DAYVIGO [Concomitant]
     Active Substance: LEMBOREXANT
     Dosage: 10 MILLIGRAM
  6. ENTRESTO [Concomitant]
     Active Substance: SACUBITRIL\VALSARTAN
     Dosage: 24-26 MG
     Route: 065
  7. FUROSEMIDE [Concomitant]
     Active Substance: FUROSEMIDE
     Dosage: 40 MILLIGRAM
  8. GUANFACINE HYDROCHLORIDE [Concomitant]
     Active Substance: GUANFACINE HYDROCHLORIDE
     Dosage: 1 MILLIGRAM
  9. PREDNISONE [Concomitant]
     Active Substance: PREDNISONE
     Dosage: 10 MILLIGRAM
  10. PREDNISONE [Concomitant]
     Active Substance: PREDNISONE
     Dosage: 5 MILLIGRAM
  11. PRIMIDONE [Concomitant]
     Active Substance: PRIMIDONE
     Dosage: 250 MILLIGRAM
  12. ROPINIROLE HYDROCHLORIDE [Concomitant]
     Active Substance: ROPINIROLE HYDROCHLORIDE
     Dosage: 2 MILLIGRAM
  13. TIZANIDINE HYDROCHLORIDE [Concomitant]
     Active Substance: TIZANIDINE HYDROCHLORIDE
     Dosage: 4 MILLIGRAM
  14. DICLOFENAC [Concomitant]
     Active Substance: DICLOFENAC
     Dosage: 1 %
  15. CALCIUM [Concomitant]
     Active Substance: CALCIUM
  16. FOLIC ACID [Concomitant]
     Active Substance: FOLIC ACID
  17. HUMIRA [Concomitant]
     Active Substance: ADALIMUMAB
     Dosage: 40MG/0.8ML PSK
  18. IRON [Concomitant]
     Active Substance: IRON
     Dosage: 7.5 TO 325

REACTIONS (6)
  - Cardiac failure congestive [Unknown]
  - Insomnia [Unknown]
  - Blood pressure fluctuation [Unknown]
  - Paranoia [Unknown]
  - COVID-19 [Unknown]
  - Hallucinations, mixed [Unknown]
